FAERS Safety Report 18702558 (Version 2)
Quarter: 2021Q1

REPORT INFORMATION
  Report Type: Report from Study
  Country: MX (occurrence: MX)
  Receive Date: 20210105
  Receipt Date: 20210119
  Transmission Date: 20210419
  Serious: Yes (Other)
  Sender: FDA-Public Use
  Company Number: NVSC2020MX346258

PATIENT
  Sex: Female
  Weight: 92 kg

DRUGS (3)
  1. CETIRIZINE [Concomitant]
     Active Substance: CETIRIZINE HYDROCHLORIDE
     Indication: PRODUCT USED FOR UNKNOWN INDICATION
     Dosage: 1 DF, QD (STARTED MORE THAN 10 YEARS AGO)
     Route: 048
  2. DIOVAN [Suspect]
     Active Substance: VALSARTAN
     Dosage: 1 DF, QD (80 MG)
     Route: 048
     Dates: start: 201801
  3. DIOVAN [Suspect]
     Active Substance: VALSARTAN
     Indication: HYPERTENSION
     Dosage: 0.5 DF, QD (160 MG)
     Route: 048
     Dates: start: 201801

REACTIONS (2)
  - Wrong technique in product usage process [Unknown]
  - Choking sensation [Unknown]

NARRATIVE: CASE EVENT DATE: 2018
